FAERS Safety Report 18083773 (Version 1)
Quarter: 2020Q3

REPORT INFORMATION
  Report Type: Spontaneous
  Country: DE (occurrence: DE)
  Receive Date: 20200729
  Receipt Date: 20200729
  Transmission Date: 20201103
  Serious: No
  Sender: FDA-Public Use
  Company Number: DE-ALKEM LABORATORIES LIMITED-DE-ALKEM-2019-10596

PATIENT
  Age: 34 Year
  Sex: Female

DRUGS (1)
  1. CEFUROXIME AXETIL. [Suspect]
     Active Substance: CEFUROXIME AXETIL
     Indication: BACTERIAL INFECTION
     Dosage: 100 MG, UNK
     Route: 048
     Dates: start: 20191007, end: 20191007

REACTIONS (4)
  - Tachycardia [Recovered/Resolved]
  - Hot flush [Recovered/Resolved]
  - Skin burning sensation [Recovered/Resolved]
  - Formication [Recovered/Resolved]

NARRATIVE: CASE EVENT DATE: 20191007
